FAERS Safety Report 8604920-3 (Version None)
Quarter: 2012Q3

REPORT INFORMATION
  Report Type: 
  Country: None (occurrence: None)
  Receive Date: 20120807
  Receipt Date: 20120723
  Transmission Date: 20120928
  Serious: Yes (Death, Other)
  Sender: FDA-Public Use
  Company Number: TPA2012A02768

PATIENT
  Age: 72 Year
  Sex: Male
  Weight: 81.6475 kg

DRUGS (12)
  1. ACTOS [Suspect]
     Indication: TYPE 2 DIABETES MELLITUS
     Dosage: 15 MG, 1 IN 1 D, 15 MG, 2 IN 1 D, 15 MG, 3 IN 1 D,  45 MG, 45 MG, 1 IN 1 D
     Dates: start: 20100728, end: 20101215
  2. ACTOS [Suspect]
     Indication: TYPE 2 DIABETES MELLITUS
     Dosage: 15 MG, 1 IN 1 D, 15 MG, 2 IN 1 D, 15 MG, 3 IN 1 D,  45 MG, 45 MG, 1 IN 1 D
     Dates: start: 20040831
  3. ACTOS [Suspect]
     Indication: TYPE 2 DIABETES MELLITUS
     Dosage: 15 MG, 1 IN 1 D, 15 MG, 2 IN 1 D, 15 MG, 3 IN 1 D,  45 MG, 45 MG, 1 IN 1 D
     Dates: start: 20060323
  4. ACTOS [Suspect]
     Indication: TYPE 2 DIABETES MELLITUS
     Dosage: 15 MG, 1 IN 1 D, 15 MG, 2 IN 1 D, 15 MG, 3 IN 1 D,  45 MG, 45 MG, 1 IN 1 D
     Dates: start: 20060428
  5. ACTOS [Suspect]
     Indication: TYPE 2 DIABETES MELLITUS
     Dosage: 15 MG, 1 IN 1 D, 15 MG, 2 IN 1 D, 15 MG, 3 IN 1 D,  45 MG, 45 MG, 1 IN 1 D
     Dates: start: 20080415, end: 20100727
  6. ACTOS [Suspect]
     Indication: TYPE 2 DIABETES MELLITUS
     Dosage: 15 MG, 1 IN 1 D, 15 MG, 2 IN 1 D, 15 MG, 3 IN 1 D,  45 MG, 45 MG, 1 IN 1 D
     Dates: start: 20060202
  7. DIABETA [Concomitant]
  8. GLUCOPHAGE [Concomitant]
  9. AVANDIA [Concomitant]
  10. MICRONASE [Concomitant]
  11. METFFORMIN HYDROCHLORIDE [Concomitant]
  12. STARLIX [Concomitant]

REACTIONS (2)
  - BLADDER TRANSITIONAL CELL CARCINOMA METASTATIC [None]
  - METASTASES TO LUNG [None]
